FAERS Safety Report 24193622 (Version 1)
Quarter: 2024Q3

REPORT INFORMATION
  Report Type: Spontaneous
  Country: HR (occurrence: HR)
  Receive Date: 20240809
  Receipt Date: 20240809
  Transmission Date: 20241016
  Serious: Yes (Hospitalization, Other)
  Sender: RANBAXY
  Company Number: HR-SUN PHARMACEUTICAL INDUSTRIES LTD-2024R1-461426

PATIENT
  Age: 73 Year
  Sex: Male

DRUGS (9)
  1. AMIODARONE [Interacting]
     Active Substance: AMIODARONE
     Indication: Atrial fibrillation
     Dosage: UNK
     Route: 065
  2. CIPROFLOXACIN [Interacting]
     Active Substance: CIPROFLOXACIN
     Indication: Haemorrhage
     Dosage: 800 MILLIGRAM, DAILY
     Route: 065
  3. CIPROFLOXACIN [Interacting]
     Active Substance: CIPROFLOXACIN
     Indication: Haemodynamic instability
  4. DOBUTAMINE [Interacting]
     Active Substance: DOBUTAMINE HYDROCHLORIDE
     Indication: Haemorrhage
     Dosage: UNK
     Route: 065
  5. DOBUTAMINE [Interacting]
     Active Substance: DOBUTAMINE HYDROCHLORIDE
     Indication: Haemodynamic instability
  6. FUROSEMIDE [Interacting]
     Active Substance: FUROSEMIDE
     Indication: Haemorrhage
     Dosage: 40 MILLIGRAM, DAILY
     Route: 065
  7. FUROSEMIDE [Interacting]
     Active Substance: FUROSEMIDE
     Indication: Haemodynamic instability
  8. NOREPINEPHRINE [Interacting]
     Active Substance: NOREPINEPHRINE\NOREPINEPHRINE BITARTRATE
     Indication: Haemorrhage
     Dosage: UNK
     Route: 065
  9. NOREPINEPHRINE [Interacting]
     Active Substance: NOREPINEPHRINE\NOREPINEPHRINE BITARTRATE
     Indication: Haemodynamic instability

REACTIONS (2)
  - Platelet dysfunction [Recovered/Resolved]
  - Drug interaction [Unknown]
